FAERS Safety Report 10486099 (Version 1)
Quarter: 2014Q4

REPORT INFORMATION
  Report Type: Report from Study
  Country: TN (occurrence: TN)
  Receive Date: 20141001
  Receipt Date: 20141001
  Transmission Date: 20150528
  Serious: Yes (Other)
  Sender: FDA-Public Use
  Company Number: TN-SA-2014SA134895

PATIENT

DRUGS (1)
  1. CLOPIDOGREL BISULFATE. [Suspect]
     Active Substance: CLOPIDOGREL BISULFATE
     Route: 065

REACTIONS (5)
  - Pyrexia [Unknown]
  - Thrombocytopenia [Unknown]
  - Mixed liver injury [Unknown]
  - Renal failure [Unknown]
  - Drug reaction with eosinophilia and systemic symptoms [Unknown]
